FAERS Safety Report 7226703-1 (Version None)
Quarter: 2011Q1

REPORT INFORMATION
  Report Type: 
  Country: None (occurrence: None)
  Receive Date: 20110105
  Receipt Date: 20101220
  Transmission Date: 20110831
  Serious: Yes (Hospitalization)
  Sender: FDA-Public Use
  Company Number: 2008001098

PATIENT
  Age: 64 Year
  Sex: Female
  Weight: 56 kg

DRUGS (17)
  1. ERLOTINIB (ERLOTINIB) (TABLET) (ERLOTINIB) [Suspect]
     Indication: NON-SMALL CELL LUNG CANCER
     Dosage: (150 MG, QD), ORAL
     Route: 048
     Dates: start: 20080401
  2. OSTEO BIFLEX PRODUCT [Concomitant]
  3. COMPAZINE [Concomitant]
  4. OXYCONTIN [Concomitant]
  5. PROTONIX [Concomitant]
  6. RITALIN [Concomitant]
  7. BEVACIZUMAB (INJECTION FOR INFUSION) [Suspect]
     Indication: NON-SMALL CELL LUNG CANCER
     Dosage: (15 MG/KG, Q3W), INTRAVENOUS
     Route: 042
     Dates: start: 20080401
  8. CALCIUM (CALCIUM) [Concomitant]
  9. ALLEGRA-D (ALLEGRA-D) [Concomitant]
  10. ALEVE [Concomitant]
  11. KYTRIL [Concomitant]
  12. PHENERGAN [Concomitant]
  13. XANAX [Concomitant]
  14. LEXAPRO [Concomitant]
  15. MULTI-VITAMIN [Concomitant]
  16. REGLAN [Concomitant]
  17. BEVACIZUMAB (INJECTION FOR INFUSION) [Suspect]

REACTIONS (12)
  - COUGH [None]
  - RHONCHI [None]
  - BREATH SOUNDS ABNORMAL [None]
  - PLATELET COUNT INCREASED [None]
  - DYSPNOEA EXERTIONAL [None]
  - LUNG INFILTRATION [None]
  - HAEMATOCRIT DECREASED [None]
  - NEUTROPHIL PERCENTAGE INCREASED [None]
  - HAEMOGLOBIN DECREASED [None]
  - ACTIVATED PARTIAL THROMBOPLASTIN TIME PROLONGED [None]
  - PULMONARY MASS [None]
  - HAEMOPTYSIS [None]
